FAERS Safety Report 9198774 (Version 3)
Quarter: 2013Q2

REPORT INFORMATION
  Report Type: Spontaneous
  Country: SE (occurrence: SE)
  Receive Date: 20130329
  Receipt Date: 20130424
  Transmission Date: 20140414
  Serious: Yes (Other)
  Sender: FDA-Public Use
  Company Number: SE-PFIZER INC-2013097270

PATIENT
  Sex: Male

DRUGS (1)
  1. TERRA-CORTRIL POLYMYXIN B [Suspect]
     Indication: EAR DISORDER
     Dosage: 2-4 DF, 3X/DAY FOR A WEEK
     Dates: start: 20130321

REACTIONS (1)
  - Deafness transitory [Not Recovered/Not Resolved]
